FAERS Safety Report 4467324-3 (Version None)
Quarter: 2004Q4

REPORT INFORMATION
  Report Type: 
  Country: None (occurrence: None)
  Receive Date: 20041004
  Receipt Date: 20040928
  Transmission Date: 20050328
  Serious: Yes (Hospitalization)
  Sender: FDA-Public Use
  Company Number: TPA2004A01173

PATIENT
  Age: 84 Year
  Sex: Female
  Weight: 47.6277 kg

DRUGS (8)
  1. ACTOS [Suspect]
     Indication: DIABETES MELLITUS NON-INSULIN-DEPENDENT
     Dosage: 45 MG, 1 IN 1 D, PER ORAL
     Route: 048
     Dates: start: 20040914, end: 20040921
  2. MVAVIK (TRANDOLAPRIL) [Concomitant]
  3. HYDROCHLOROTHIAZIDE [Concomitant]
  4. LOPRESSOR [Concomitant]
  5. NIFEDIPINE [Concomitant]
  6. CALCIUM (CALCIUM [Concomitant]
  7. ATIVAN [Concomitant]
  8. MULTIVITAMIN [Concomitant]

REACTIONS (3)
  - BLADDER DISORDER [None]
  - LUNG DISORDER [None]
  - PULMONARY OEDEMA [None]
